FAERS Safety Report 9211341 (Version 2)
Quarter: 2015Q2

REPORT INFORMATION
  Report Type: Spontaneous
  Country: US (occurrence: US)
  Receive Date: 20130404
  Receipt Date: 20150427
  Transmission Date: 20150821
  Serious: No
  Sender: FDA-Public Use
  Company Number: US-AMGEN-USASP2013016076

PATIENT
  Age: 62 Year
  Sex: Male

DRUGS (2)
  1. TOPICORT /00028604/ [Suspect]
     Active Substance: HYDROCORTISONE ACETATE
     Indication: PSORIASIS
     Dosage: UNK
     Route: 065
  2. ENBREL [Suspect]
     Active Substance: ETANERCEPT
     Indication: PSORIASIS
     Dosage: 50 MG, QWK
     Route: 065
     Dates: start: 20060606, end: 201412

REACTIONS (3)
  - Skin exfoliation [Unknown]
  - Psoriasis [Not Recovered/Not Resolved]
  - Therapeutic response decreased [Unknown]
